FAERS Safety Report 9840956 (Version 1)
Quarter: 2013Q4

REPORT INFORMATION
  Report Type: Spontaneous
  Country: US (occurrence: None)
  Receive Date: 20131213
  Receipt Date: 20131213
  Transmission Date: 20140711
  Serious: Yes (Other)
  Sender: FDA-Public Use
  Company Number: 2012AP003442

PATIENT
  Age: 71 Year
  Sex: Male

DRUGS (3)
  1. LISINOPRIL TABLETS [Suspect]
     Indication: PRODUCT USED FOR UNKNOWN INDICATION
  2. HYDROCHLOROTHIAZIDE [Concomitant]
  3. PANTOPRAZOLE [Concomitant]

REACTIONS (1)
  - Angioedema [None]
